FAERS Safety Report 19941997 (Version 2)
Quarter: 2023Q1

REPORT INFORMATION
  Report Type: Report from Study
  Country: US (occurrence: US)
  Receive Date: 20211011
  Receipt Date: 20230224
  Transmission Date: 20230418
  Serious: Yes (Hospitalization, Other)
  Sender: FDA-Public Use
  Company Number: US-GW PHARMA-202110USGW04817

PATIENT
  Age: 8 Year
  Sex: Female

DRUGS (1)
  1. EPIDIOLEX [Suspect]
     Active Substance: CANNABIDIOL
     Indication: Product used for unknown indication
     Dosage: 2.7 MILLILITER, BID
     Dates: start: 201812

REACTIONS (2)
  - Spinal operation [Unknown]
  - Seizure [Unknown]

NARRATIVE: CASE EVENT DATE: 20210927
